FAERS Safety Report 20484462 (Version 1)
Quarter: 2022Q1

REPORT INFORMATION
  Report Type: Spontaneous
  Country: CZ (occurrence: CZ)
  Receive Date: 20220217
  Receipt Date: 20220217
  Transmission Date: 20220424
  Serious: Yes (Life-Threatening, Hospitalization, Other)
  Sender: FDA-Public Use
  Company Number: None

PATIENT
  Age: 73 Year
  Sex: Male
  Weight: 78 kg

DRUGS (3)
  1. IRINOTECAN [Suspect]
     Active Substance: IRINOTECAN
     Indication: Rectal cancer
     Route: 042
     Dates: start: 20210528, end: 20220105
  2. CETUXIMAB [Suspect]
     Active Substance: CETUXIMAB
     Indication: Rectal cancer
     Dosage: 14-DAY CYCLE OF BIOCHEMOTHERAPY, AS A PART OF CETUXIMAB+FOLFIRI ANDRE REGIME. 15 CYCLES HAVE BEEN AD
     Route: 042
     Dates: start: 20210611, end: 20220105
  3. FLUOROURACIL [Concomitant]
     Active Substance: FLUOROURACIL
     Indication: Rectal cancer
     Route: 042
     Dates: start: 20210528, end: 20220105

REACTIONS (2)
  - General physical health deterioration [Unknown]
  - Renal failure [Unknown]

NARRATIVE: CASE EVENT DATE: 20220112
